FAERS Safety Report 21622829 (Version 1)
Quarter: 2022Q4

REPORT INFORMATION
  Report Type: Spontaneous
  Country: FR (occurrence: FR)
  Receive Date: 20221121
  Receipt Date: 20221121
  Transmission Date: 20230113
  Serious: Yes (Hospitalization, Other)
  Sender: FDA-Public Use
  Company Number: None

PATIENT
  Age: 63 Year
  Sex: Female
  Weight: 82 kg

DRUGS (6)
  1. LINEZOLID [Suspect]
     Active Substance: LINEZOLID
     Indication: Postoperative wound infection
     Dates: start: 20220920, end: 20220922
  2. LINEZOLID [Suspect]
     Active Substance: LINEZOLID
     Dosage: 600MG X2/DAY
     Route: 042
     Dates: start: 20221012, end: 20221014
  3. LINEZOLID [Suspect]
     Active Substance: LINEZOLID
     Dosage: 600MG/DAY
     Route: 048
     Dates: start: 20221014, end: 20221018
  4. CEFEPIME HYDROCHLORIDE [Suspect]
     Active Substance: CEFEPIME HYDROCHLORIDE
     Indication: Postoperative wound infection
     Dosage: 2G X 3 PER DAY
     Route: 042
     Dates: start: 20220920, end: 20221013
  5. CEFEPIME HYDROCHLORIDE [Suspect]
     Active Substance: CEFEPIME HYDROCHLORIDE
     Dosage: 1 G X 2/DAY
     Route: 042
     Dates: start: 20221014, end: 20221017
  6. OFLOXACIN [Concomitant]
     Active Substance: OFLOXACIN
     Indication: Product used for unknown indication

REACTIONS (2)
  - Acute kidney injury [Recovering/Resolving]
  - Encephalopathy [Recovered/Resolved]

NARRATIVE: CASE EVENT DATE: 20221013
